FAERS Safety Report 6982036-X (Version None)
Quarter: 2010Q3

REPORT INFORMATION
  Report Type: 
  Country: None (occurrence: None)
  Receive Date: 20100914
  Receipt Date: 20091130
  Transmission Date: 20110219
  Serious: Yes (Other)
  Sender: FDA-Public Use
  Company Number: US-PFIZER INC-2009280900

PATIENT
  Sex: Female

DRUGS (4)
  1. LYRICA [Suspect]
     Indication: FIBROMYALGIA
     Dosage: 150 MG, 2X/DAY
     Route: 048
     Dates: start: 20081101
  2. ATIVAN [Concomitant]
     Indication: ANXIETY
     Dosage: 1MG OCCASIONALLY
     Route: 048
     Dates: start: 20081101
  3. SOMA [Concomitant]
     Indication: MUSCLE SPASMS
     Dosage: 150 MG, 1X/DAY
     Route: 048
     Dates: start: 20070101
  4. BUPROPION [Concomitant]
     Indication: DEPRESSION
     Dosage: 150 MG, 1X/DAY
     Route: 048
     Dates: start: 20080101

REACTIONS (3)
  - DYSPHAGIA [None]
  - OESOPHAGEAL DISCOMFORT [None]
  - SWOLLEN TONGUE [None]
